FAERS Safety Report 16663197 (Version 1)
Quarter: 2019Q3

REPORT INFORMATION
  Report Type: Spontaneous
  Country: GB (occurrence: GB)
  Receive Date: 20190802
  Receipt Date: 20190802
  Transmission Date: 20191004
  Serious: Yes (Other)
  Sender: FDA-Public Use
  Company Number: GB-MYLANLABS-2019M1071840

PATIENT
  Age: 22 Year
  Sex: Female
  Weight: 50 kg

DRUGS (1)
  1. CITALOPRAM [Suspect]
     Active Substance: CITALOPRAM HYDROBROMIDE
     Indication: BIPOLAR DISORDER
     Dosage: 30 MILLIGRAM
     Route: 048
     Dates: start: 20061010, end: 20061110

REACTIONS (7)
  - Headache [Recovered/Resolved]
  - Condition aggravated [Recovered/Resolved]
  - Suicidal ideation [Recovered/Resolved]
  - Poor quality sleep [Recovered/Resolved]
  - Mydriasis [Recovered/Resolved]
  - Hyperaesthesia [Recovered/Resolved]
  - Affect lability [Recovered/Resolved]

NARRATIVE: CASE EVENT DATE: 20061012
